FAERS Safety Report 5632858-2 (Version None)
Quarter: 2008Q1

REPORT INFORMATION
  Report Type: 
  Country: None (occurrence: None)
  Receive Date: 20080221
  Receipt Date: 20071116
  Transmission Date: 20080703
  Serious: No
  Sender: FDA-Public Use
  Company Number: US-BAYER-200713990BCC

PATIENT
  Sex: Male

DRUGS (1)
  1. FINACEA [Suspect]
     Indication: DRUG USE FOR UNKNOWN INDICATION
     Route: 061
     Dates: start: 20071101

REACTIONS (3)
  - APPLICATION SITE DISCHARGE [None]
  - APPLICATION SITE DRYNESS [None]
  - ERYTHEMA [None]
